FAERS Safety Report 4372400-X (Version None)
Quarter: 2004Q2

REPORT INFORMATION
  Report Type: 
  Country: None (occurrence: None)
  Receive Date: 20040526
  Receipt Date: 20031017
  Transmission Date: 20050107
  Serious: Yes (Life-Threatening)
  Sender: FDA-Public Use
  Company Number: BE-JNJFOC-20030906133

PATIENT
  Age: 37 Year
  Sex: Female

DRUGS (4)
  1. PREPULSID (CISAPRIDE) TABLETS [Suspect]
     Indication: IMPAIRED GASTRIC EMPTYING
     Dosage: 10 MG, 4 IN 1 DAY
     Dates: start: 20030324, end: 20030922
  2. ALDACTAZINE (TABLETS) ALDACTAZINE [Concomitant]
  3. DIANE (UNKNOWN) DIANE [Concomitant]
  4. DAFLON (UNKNOWN) DIOSMIN [Concomitant]

REACTIONS (5)
  - ARRHYTHMIA [None]
  - BLOOD MAGNESIUM INCREASED [None]
  - DRUG INTERACTION [None]
  - ELECTROCARDIOGRAM QT CORRECTED INTERVAL PROLONGED [None]
  - SINUS BRADYCARDIA [None]
